FAERS Safety Report 8922425 (Version 1)
Quarter: 2012Q4

REPORT INFORMATION
  Report Type: 
  Country: FR (occurrence: FR)
  Receive Date: 20121123
  Receipt Date: 20121123
  Transmission Date: 20130627
  Serious: Yes (Hospitalization)
  Sender: FDA-Public Use
  Company Number: FR-JNJFOC-20121108805

PATIENT
  Age: 36 Year
  Sex: Female

DRUGS (3)
  1. SIMPONI [Suspect]
     Indication: RHEUMATOID ARTHRITIS
     Route: 058
     Dates: start: 20120927
  2. ADALIMUMAB [Concomitant]
  3. MICROVAL [Concomitant]
     Indication: CONTRACEPTION
     Route: 048

REACTIONS (1)
  - Metrorrhagia [Unknown]
